FAERS Safety Report 22228215 (Version 2)
Quarter: 2023Q2

REPORT INFORMATION
  Report Type: Spontaneous
  Country: FR (occurrence: FR)
  Receive Date: 20230419
  Receipt Date: 20230616
  Transmission Date: 20230722
  Serious: Yes (Other)
  Sender: FDA-Public Use
  Company Number: FR-Accord-308113

PATIENT
  Age: 68 Year
  Sex: Female

DRUGS (10)
  1. AFATINIB [Suspect]
     Active Substance: AFATINIB
     Indication: Product used for unknown indication
     Dates: start: 2020, end: 202009
  2. OSIMERTINIB [Suspect]
     Active Substance: OSIMERTINIB
     Indication: Product used for unknown indication
     Dates: start: 202009
  3. OSIMERTINIB [Suspect]
     Active Substance: OSIMERTINIB
     Dates: start: 2021
  4. IMATINIB [Suspect]
     Active Substance: IMATINIB
     Indication: Product used for unknown indication
     Dates: start: 2020, end: 2020
  5. IMATINIB [Suspect]
     Active Substance: IMATINIB
     Dosage: IMATINIB WAS INCREASED TO 300 MG
     Dates: start: 202104
  6. IMATINIB [Suspect]
     Active Substance: IMATINIB
     Dates: start: 2022
  7. IMATINIB [Suspect]
     Active Substance: IMATINIB
     Dates: start: 202201
  8. CRIZOTINIB [Suspect]
     Active Substance: CRIZOTINIB
     Indication: Product used for unknown indication
     Dates: start: 202111
  9. CRIZOTINIB [Suspect]
     Active Substance: CRIZOTINIB
  10. CRIZOTINIB [Suspect]
     Active Substance: CRIZOTINIB
     Dates: start: 202201

REACTIONS (5)
  - Diarrhoea [Unknown]
  - Acute kidney injury [Unknown]
  - Blood creatine phosphokinase increased [Unknown]
  - Drug interaction [Unknown]
  - Overdose [Unknown]

NARRATIVE: CASE EVENT DATE: 20200101
